FAERS Safety Report 12916247 (Version 1)
Quarter: 2016Q4

REPORT INFORMATION
  Report Type: Spontaneous
  Country: US (occurrence: US)
  Receive Date: 20161107
  Receipt Date: 20161107
  Transmission Date: 20170207
  Serious: No
  Sender: FDA-Public Use
  Company Number: None

PATIENT
  Sex: Female
  Weight: 63.05 kg

DRUGS (5)
  1. ASPIRIN. [Concomitant]
     Active Substance: ASPIRIN
  2. ECONAZOLE NITRATE CREAM 1% [Suspect]
     Active Substance: ECONAZOLE NITRATE
     Indication: RASH
     Dosage: ECONAZOLE NITRATE CREAM 1% - RUB CREAM ON RASH - TOPICAL - BID
     Route: 061
     Dates: start: 20160927, end: 20161020
  3. PROBIOTIC [Concomitant]
     Active Substance: PROBIOTICS NOS
  4. ESTRADIOL - NORETH [Concomitant]
  5. LEVOTHYROXINE. [Concomitant]
     Active Substance: LEVOTHYROXINE

REACTIONS (3)
  - Rash macular [None]
  - Rash pruritic [None]
  - Rash erythematous [None]
